FAERS Safety Report 16305020 (Version 1)
Quarter: 2019Q2

REPORT INFORMATION
  Report Type: Spontaneous
  Country: US (occurrence: US)
  Receive Date: 20190408
  Receipt Date: 20190408
  Transmission Date: 20190711
  Serious: No
  Sender: FDA-Public Use
  Company Number: None

PATIENT
  Age: 65 Year
  Sex: Female

DRUGS (1)
  1. VERZENIO [Suspect]
     Active Substance: ABEMACICLIB
     Indication: PRODUCT USED FOR UNKNOWN INDICATION
     Route: 048
     Dates: start: 20190301

REACTIONS (8)
  - Insomnia [None]
  - Abdominal pain [None]
  - Hair texture abnormal [None]
  - Fatigue [None]
  - Decreased appetite [None]
  - Nausea [None]
  - Constipation [None]
  - Diarrhoea [None]

NARRATIVE: CASE EVENT DATE: 20190301
